FAERS Safety Report 5474723-X (Version None)
Quarter: 2007Q4

REPORT INFORMATION
  Report Type: 
  Country: None (occurrence: None)
  Receive Date: 20071002
  Receipt Date: 20070928
  Transmission Date: 20080405
  Serious: Yes (Hospitalization)
  Sender: FDA-Public Use
  Company Number: US-ASTRAZENECA-2007UW06403

PATIENT
  Age: 50 Year
  Sex: Female
  Weight: 65.8 kg

DRUGS (2)
  1. ARIMIDEX [Suspect]
     Indication: BREAST CANCER FEMALE
     Route: 048
     Dates: start: 20070328
  2. TAMOXIFEN CITRATE [Concomitant]

REACTIONS (4)
  - ABDOMINAL DISTENSION [None]
  - HYPERSENSITIVITY [None]
  - HYPERTENSION [None]
  - NAUSEA [None]
